FAERS Safety Report 19167478 (Version 2)
Quarter: 2021Q2

REPORT INFORMATION
  Report Type: Report from Study
  Country: FR (occurrence: FR)
  Receive Date: 20210422
  Receipt Date: 20210430
  Transmission Date: 20210717
  Serious: Yes (Hospitalization)
  Sender: FDA-Public Use
  Company Number: FR-REGENERON PHARMACEUTICALS, INC.-2021-43519

PATIENT

DRUGS (6)
  1. CEMIPLIMAB [Suspect]
     Active Substance: CEMIPLIMAB
     Indication: NEOPLASM MALIGNANT
     Dosage: 350 MG, Q3W
     Route: 042
  2. SAR441000 [Suspect]
     Active Substance: INVESTIGATIONAL PRODUCT
     Dosage: 1000 UG, QW
     Route: 036
  3. LEVOTHYROXINE SODIUM. [Concomitant]
     Active Substance: LEVOTHYROXINE SODIUM
     Indication: PRODUCT USED FOR UNKNOWN INDICATION
     Dosage: UNK
     Route: 065
     Dates: start: 2018
  4. CEMIPLIMAB [Suspect]
     Active Substance: CEMIPLIMAB
     Dosage: 350 MG, Q3W
     Route: 042
     Dates: start: 20200806, end: 20200806
  5. SAR441000 [Suspect]
     Active Substance: INVESTIGATIONAL PRODUCT
     Dosage: 1000 UG, QW
     Route: 036
  6. SAR441000 [Suspect]
     Active Substance: INVESTIGATIONAL PRODUCT
     Indication: NEOPLASM MALIGNANT
     Dosage: 1000 UG, QW
     Route: 036
     Dates: start: 20200806, end: 20200806

REACTIONS (1)
  - Enteritis [Not Recovered/Not Resolved]

NARRATIVE: CASE EVENT DATE: 20201203
